FAERS Safety Report 21596825 (Version 4)
Quarter: 2024Q4

REPORT INFORMATION
  Report Type: Spontaneous
  Country: BR (occurrence: BR)
  Receive Date: 20221115
  Receipt Date: 20241026
  Transmission Date: 20250114
  Serious: Yes (Hospitalization, Other)
  Sender: ROCHE
  Company Number: BR-ROCHE-3218025

PATIENT
  Age: 84 Year
  Sex: Male

DRUGS (7)
  1. ATEZOLIZUMAB [Suspect]
     Active Substance: ATEZOLIZUMAB
     Indication: Hepatocellular carcinoma
     Route: 065
     Dates: start: 202106, end: 202206
  2. ATEZOLIZUMAB [Suspect]
     Active Substance: ATEZOLIZUMAB
     Indication: Squamous cell carcinoma
     Route: 065
     Dates: start: 2022
  3. BEVACIZUMAB [Suspect]
     Active Substance: BEVACIZUMAB
     Indication: Hepatocellular carcinoma
     Route: 065
     Dates: start: 202106, end: 202206
  4. BEVACIZUMAB [Suspect]
     Active Substance: BEVACIZUMAB
     Indication: Squamous cell carcinoma
     Route: 065
     Dates: start: 2022
  5. XIFAXAN [Concomitant]
     Active Substance: RIFAXIMIN
  6. ROSUVASTATIN [Concomitant]
     Active Substance: ROSUVASTATIN
  7. PROLIVE [Concomitant]

REACTIONS (6)
  - Ascites [Recovered/Resolved]
  - Hepatic encephalopathy [Recovered/Resolved]
  - Hepatic failure [Not Recovered/Not Resolved]
  - COVID-19 [Unknown]
  - Upper gastrointestinal haemorrhage [Unknown]
  - Craniofacial fracture [Unknown]

NARRATIVE: CASE EVENT DATE: 20220601
